FAERS Safety Report 23409063 (Version 3)
Quarter: 2024Q1

REPORT INFORMATION
  Report Type: Spontaneous
  Country: GB (occurrence: GB)
  Receive Date: 20240117
  Receipt Date: 20240213
  Transmission Date: 20240409
  Serious: Yes (Hospitalization, Other)
  Sender: FDA-Public Use
  Company Number: GB-ABBVIE-5589048

PATIENT
  Age: 67 Year
  Sex: Female

DRUGS (2)
  1. BOTOX [Suspect]
     Active Substance: ONABOTULINUMTOXINA
     Indication: Hypertonic bladder
     Dosage: TIME INTERVAL: AS NECESSARY
     Route: 043
     Dates: start: 202301, end: 202301
  2. BOTOX [Suspect]
     Active Substance: ONABOTULINUMTOXINA
     Indication: Hypertonic bladder
     Dosage: TIME INTERVAL: AS NECESSARY
     Route: 043
     Dates: start: 20230210, end: 20230210

REACTIONS (9)
  - Sepsis [Recovered/Resolved]
  - Bronchiectasis [Unknown]
  - Urinary retention [Unknown]
  - Urinary incontinence [Unknown]
  - Pseudomonas test positive [Unknown]
  - Urinary retention [Unknown]
  - Citrobacter test positive [Unknown]
  - Acute kidney injury [Unknown]
  - Renal tubular necrosis [Unknown]

NARRATIVE: CASE EVENT DATE: 20230531
